FAERS Safety Report 4781634-1 (Version None)
Quarter: 2005Q3

REPORT INFORMATION
  Report Type: 
  Country: None (occurrence: None)
  Receive Date: 20050928
  Receipt Date: 20050919
  Transmission Date: 20060218
  Serious: Yes (Hospitalization)
  Sender: FDA-Public Use
  Company Number: ZA-BRISTOL-MYERS SQUIBB COMPANY-13115647

PATIENT
  Age: 48 Year
  Sex: Male

DRUGS (7)
  1. CISPLATIN [Suspect]
     Indication: GASTRIC CANCER
     Route: 042
     Dates: start: 20050804, end: 20050804
  2. FLUOROURACIL [Suspect]
     Indication: GASTRIC CANCER
     Route: 042
     Dates: start: 20050804, end: 20050809
  3. LENTOGESIC [Concomitant]
     Indication: PAIN
     Route: 048
     Dates: start: 20050801
  4. OXAZEPAM [Concomitant]
     Indication: INSOMNIA
     Route: 048
     Dates: start: 20050804
  5. KYTRIL [Concomitant]
     Indication: NAUSEA
     Route: 048
     Dates: start: 20050804, end: 20050807
  6. MAXOLON [Concomitant]
     Indication: NAUSEA
     Route: 048
     Dates: start: 20050810, end: 20050811
  7. CYCLIZINE [Concomitant]
     Indication: NAUSEA
     Route: 054
     Dates: start: 20050810

REACTIONS (1)
  - DEHYDRATION [None]
